FAERS Safety Report 17605239 (Version 1)
Quarter: 2020Q1

REPORT INFORMATION
  Report Type: Spontaneous
  Country: US (occurrence: US)
  Receive Date: 20200331
  Receipt Date: 20200331
  Transmission Date: 20200409
  Serious: No
  Sender: FDA-Public Use
  Company Number: US-ASTRAZENECA-2020SE35428

PATIENT
  Age: 1013 Month
  Sex: Female
  Weight: 56.7 kg

DRUGS (4)
  1. TYLENOL [Concomitant]
     Active Substance: ACETAMINOPHEN
  2. FASENRA [Suspect]
     Active Substance: BENRALIZUMAB
     Indication: ASTHMA
     Dosage: ONCE
     Route: 058
     Dates: start: 20200220
  3. BUDESONIDE. [Concomitant]
     Active Substance: BUDESONIDE
     Route: 065
  4. IPRATROPIUM [Concomitant]
     Active Substance: IPRATROPIUM
     Dosage: 3 TO 4 TIMES DAILY
     Route: 065

REACTIONS (5)
  - Pruritus [Recovered/Resolved]
  - Headache [Not Recovered/Not Resolved]
  - Body height decreased [Unknown]
  - Oropharyngeal pain [Recovered/Resolved]
  - Dizziness postural [Recovering/Resolving]

NARRATIVE: CASE EVENT DATE: 202002
